FAERS Safety Report 10537766 (Version 3)
Quarter: 2015Q2

REPORT INFORMATION
  Report Type: Spontaneous
  Country: US (occurrence: US)
  Receive Date: 20141023
  Receipt Date: 20150626
  Transmission Date: 20150821
  Serious: Yes (Other)
  Sender: FDA-Public Use
  Company Number: US-UCBSA-2014007550

PATIENT
  Sex: Male
  Weight: 76 kg

DRUGS (5)
  1. ONFI [Concomitant]
     Active Substance: CLOBAZAM
     Indication: PRODUCT USED FOR UNKNOWN INDICATION
     Dosage: 20 MG, 2X/DAY (BID), 10 MG TABLETS VIA GTUBE
  2. TOPAMAX [Concomitant]
     Active Substance: TOPIRAMATE
     Indication: PRODUCT USED FOR UNKNOWN INDICATION
     Dosage: 200 MG, 2X/DAY (BID), ROUTE: GTUBE
  3. FLUCONAZOLE. [Concomitant]
     Active Substance: FLUCONAZOLE
     Indication: FUNGAL INFECTION
     Dosage: 2.5 ML, ONCE DAILY (QD), STRENGTH: 40 MG/ML, ROUTE: GTUBE
     Dates: start: 201310
  4. KEPPRA [Suspect]
     Active Substance: LEVETIRACETAM
     Dosage: 1000 MG, 2X/DAY (BID) (TAKING SINCE 11YEARS) ROUTE: GTUBE
  5. KEPPRA [Suspect]
     Active Substance: LEVETIRACETAM
     Indication: SEIZURE
     Dosage: UNKNOWN (STARTED AT AGE OF 8 YEAR)

REACTIONS (4)
  - Fungal infection [Recovered/Resolved]
  - Incorrect route of drug administration [Unknown]
  - Quadriplegia [Not Recovered/Not Resolved]
  - Seizure [Recovered/Resolved]
